FAERS Safety Report 26191353 (Version 1)
Quarter: 2025Q4

REPORT INFORMATION
  Report Type: Spontaneous
  Country: CN (occurrence: CN)
  Receive Date: 20251223
  Receipt Date: 20251223
  Transmission Date: 20260118
  Serious: Yes (Other)
  Sender: OCTAPHARMA
  Company Number: CN-OCTA-2025001194

PATIENT
  Age: 66 Year
  Sex: Male
  Weight: 68 kg

DRUGS (6)
  1. ALBUMIN HUMAN [Suspect]
     Active Substance: ALBUMIN HUMAN
     Indication: Hypoproteinaemia
     Dosage: 10 G
     Route: 042
     Dates: start: 20251206, end: 20251216
  2. PIPERACILLIN SODIUM\TAZOBACTAM SODIUM [Suspect]
     Active Substance: PIPERACILLIN SODIUM\TAZOBACTAM SODIUM
     Indication: Pyelonephritis acute
     Dosage: DILUTED IN 0.9% SODIUM CHLORIDE INJECTION 100 ML (IVGTT Q8H)
     Route: 042
     Dates: start: 20251203, end: 20251204
  3. TIGECYCLINE [Suspect]
     Active Substance: TIGECYCLINE
     Indication: Pyelonephritis acute
     Dosage: DILUTED IN 0.9% SODIUM CHLORIDE INJECTION 100 ML (IVGTT Q12H, DOUBLING OF THE FIRST DOSE)
     Route: 042
     Dates: start: 20251205, end: 20251216
  4. MEROPENEM [Suspect]
     Active Substance: MEROPENEM
     Indication: Pyelonephritis acute
     Dosage: DILUTED IN 0.9% SODIUM CHLORIDE INJECTION 100 ML (IVGTT Q12H)
     Route: 042
     Dates: start: 20251204, end: 20251205
  5. UNSPECIFIED INGREDIENT [Concomitant]
     Active Substance: UNSPECIFIED INGREDIENT
     Indication: Thrombosis prophylaxis
     Route: 058
     Dates: start: 20251205, end: 20251216
  6. Ceftazidime and avibactam for injection [Concomitant]
     Indication: Product used for unknown indication
     Dosage: DILUTED IN 0.9% SODIUM CHLORIDE INJECTION 50 ML (MICROPUMP INJECTION, QD).

REACTIONS (4)
  - Nausea [Recovering/Resolving]
  - Vomiting [Recovering/Resolving]
  - Decreased appetite [Unknown]
  - Diarrhoea [Unknown]

NARRATIVE: CASE EVENT DATE: 20251210
